FAERS Safety Report 21370267 (Version 1)
Quarter: 2022Q3

REPORT INFORMATION
  Report Type: Spontaneous
  Country: US (occurrence: US)
  Receive Date: 20220923
  Receipt Date: 20220923
  Transmission Date: 20221026
  Serious: Yes (Life-Threatening, Other)
  Sender: FDA-Public Use
  Company Number: US-drreddys-LIT/USA/22/0154842

PATIENT
  Age: 53 Year
  Sex: Male

DRUGS (28)
  1. DOXORUBICIN HYDROCHLORIDE [Suspect]
     Active Substance: DOXORUBICIN HYDROCHLORIDE
     Indication: Diffuse large B-cell lymphoma
  2. DEXAMETHASONE SODIUM PHOSPHATE [Suspect]
     Active Substance: DEXAMETHASONE SODIUM PHOSPHATE
     Indication: Nervous system disorder
     Dosage: TEDDI-R
  3. DEXAMETHASONE SODIUM PHOSPHATE [Suspect]
     Active Substance: DEXAMETHASONE SODIUM PHOSPHATE
     Indication: Metastases to meninges
     Dosage: MULTIPLE DOSES
  4. DEXAMETHASONE SODIUM PHOSPHATE [Suspect]
     Active Substance: DEXAMETHASONE SODIUM PHOSPHATE
  5. MEMANTINE HYDROCHLORIDE [Suspect]
     Active Substance: MEMANTINE HYDROCHLORIDE
     Indication: Nervous system disorder
  6. MEMANTINE HYDROCHLORIDE [Suspect]
     Active Substance: MEMANTINE HYDROCHLORIDE
     Indication: Metastases to meninges
  7. RITUXIMAB [Suspect]
     Active Substance: RITUXIMAB
     Indication: Diffuse large B-cell lymphoma
  8. RITUXIMAB [Suspect]
     Active Substance: RITUXIMAB
     Dosage: TEDDI-R REGIMEN
  9. CYCLOPHOSPHAMIDE [Suspect]
     Active Substance: CYCLOPHOSPHAMIDE
     Indication: Diffuse large B-cell lymphoma
  10. VINCRISTINE [Suspect]
     Active Substance: VINCRISTINE
     Indication: Diffuse large B-cell lymphoma
  11. PREDNISONE [Suspect]
     Active Substance: PREDNISONE
     Indication: Diffuse large B-cell lymphoma
  12. METHOTREXATE [Suspect]
     Active Substance: METHOTREXATE
     Indication: Diffuse large B-cell lymphoma
  13. METHOTREXATE [Suspect]
     Active Substance: METHOTREXATE
     Indication: Metastases to meninges
     Route: 037
  14. METHOTREXATE [Suspect]
     Active Substance: METHOTREXATE
     Indication: Nervous system disorder
  15. IBRUTINIB [Suspect]
     Active Substance: IBRUTINIB
     Indication: Nervous system disorder
  16. IBRUTINIB [Suspect]
     Active Substance: IBRUTINIB
     Indication: Metastases to meninges
  17. DOXIL [Suspect]
     Active Substance: DOXORUBICIN HYDROCHLORIDE
     Indication: Nervous system disorder
  18. DOXIL [Suspect]
     Active Substance: DOXORUBICIN HYDROCHLORIDE
     Indication: Metastases to meninges
  19. ETOPOSIDE [Suspect]
     Active Substance: ETOPOSIDE
     Indication: Nervous system disorder
  20. ETOPOSIDE [Suspect]
     Active Substance: ETOPOSIDE
     Indication: Metastases to meninges
  21. TEMOZOLOMIDE [Suspect]
     Active Substance: TEMOZOLOMIDE
     Indication: Nervous system disorder
  22. TEMOZOLOMIDE [Suspect]
     Active Substance: TEMOZOLOMIDE
     Indication: Metastases to meninges
  23. ANAKINRA [Suspect]
     Active Substance: ANAKINRA
     Indication: Nervous system disorder
     Dosage: SINGLE DOSE
  24. ANAKINRA [Suspect]
     Active Substance: ANAKINRA
     Indication: Metastases to meninges
  25. CYTARABINE [Suspect]
     Active Substance: CYTARABINE
     Indication: Nervous system disorder
  26. CYTARABINE [Suspect]
     Active Substance: CYTARABINE
     Indication: Metastases to meninges
     Route: 037
  27. CISPLATIN [Suspect]
     Active Substance: CISPLATIN
     Indication: Nervous system disorder
  28. CISPLATIN [Suspect]
     Active Substance: CISPLATIN
     Indication: Metastases to meninges
     Route: 037

REACTIONS (5)
  - Drug ineffective [Unknown]
  - Nervous system disorder [Unknown]
  - Metastases to meninges [Unknown]
  - Disease recurrence [Unknown]
  - Treatment failure [Unknown]
